FAERS Safety Report 19074281 (Version 1)
Quarter: 2021Q1

REPORT INFORMATION
  Report Type: Spontaneous
  Country: AT (occurrence: AT)
  Receive Date: 20210330
  Receipt Date: 20210330
  Transmission Date: 20210420
  Serious: Yes (Other)
  Sender: FDA-Public Use
  Company Number: AT-INCYTE CORPORATION-2020IN013390

PATIENT

DRUGS (1)
  1. JAKAVI [Suspect]
     Active Substance: RUXOLITINIB
     Indication: POLYCYTHAEMIA VERA
     Dosage: 10 MG, BID (10 MG 2X FOR 1.5 YEARS)
     Route: 065
     Dates: start: 201810

REACTIONS (3)
  - Myelocyte count increased [Unknown]
  - Blast cell count increased [Unknown]
  - Metamyelocyte count increased [Unknown]

NARRATIVE: CASE EVENT DATE: 201812
